FAERS Safety Report 22040479 (Version 3)
Quarter: 2023Q2

REPORT INFORMATION
  Report Type: Spontaneous
  Country: US (occurrence: US)
  Receive Date: 20230227
  Receipt Date: 20230418
  Transmission Date: 20230722
  Serious: No
  Sender: FDA-Public Use
  Company Number: US-PFIZER INC-PV202300034257

PATIENT
  Age: 13 Year
  Sex: Female

DRUGS (2)
  1. GENOTROPIN [Suspect]
     Active Substance: SOMATROPIN
     Dosage: 1.8 MG, ALTERNATE DAY
     Dates: start: 202302
  2. GENOTROPIN [Suspect]
     Active Substance: SOMATROPIN
     Dosage: 2 MG, ALTERNATE DAY
     Dates: start: 202302

REACTIONS (4)
  - Product preparation error [Unknown]
  - Device leakage [Unknown]
  - Device malfunction [Unknown]
  - Drug dose omission by device [Unknown]
